FAERS Safety Report 12614504 (Version 1)
Quarter: 2016Q3

REPORT INFORMATION
  Report Type: Spontaneous
  Country: US (occurrence: US)
  Receive Date: 20160802
  Receipt Date: 20160802
  Transmission Date: 20161109
  Serious: No
  Sender: FDA-Public Use
  Company Number: US-JAZZ-2016-US-003230

PATIENT
  Age: 53 Year
  Sex: Female

DRUGS (4)
  1. HYDROXYZINE HCL [Suspect]
     Active Substance: HYDROXYZINE HYDROCHLORIDE
     Indication: PRODUCT USED FOR UNKNOWN INDICATION
     Dosage: UNK
     Dates: start: 20110801
  2. XYREM [Suspect]
     Active Substance: SODIUM OXYBATE
     Indication: NARCOLEPSY
     Dosage: 2.25 G, BID
     Dates: start: 201308, end: 201308
  3. XYREM [Suspect]
     Active Substance: SODIUM OXYBATE
     Indication: CATAPLEXY
     Dosage: DOSE ADJUSTMENTS
     Route: 048
  4. XYREM [Suspect]
     Active Substance: SODIUM OXYBATE
     Dosage: 3 - 3.5 G, QD
     Route: 048
     Dates: start: 201505

REACTIONS (6)
  - Irritable bowel syndrome [Unknown]
  - Thirst [Unknown]
  - Dehydration [Unknown]
  - Fibromyalgia [Unknown]
  - Pollakiuria [Unknown]
  - Dry eye [Unknown]

NARRATIVE: CASE EVENT DATE: 201502
